FAERS Safety Report 19898492 (Version 1)
Quarter: 2021Q3

REPORT INFORMATION
  Report Type: Spontaneous
  Country: RS (occurrence: RS)
  Receive Date: 20210930
  Receipt Date: 20210930
  Transmission Date: 20211014
  Serious: Yes (Hospitalization, Other)
  Sender: FDA-Public Use
  Company Number: RS-GILEAD-2021-0550677

PATIENT
  Age: 36 Year
  Sex: Male

DRUGS (2)
  1. RALTEGRAVIR. [Concomitant]
     Active Substance: RALTEGRAVIR
  2. TRUVADA [Suspect]
     Active Substance: EMTRICITABINE\TENOFOVIR DISOPROXIL FUMARATE
     Indication: HIV INFECTION
     Dosage: UNK
     Route: 065
     Dates: start: 20190328, end: 202109

REACTIONS (4)
  - Myasthenia gravis [Unknown]
  - Erectile dysfunction [Unknown]
  - Drug ineffective [Unknown]
  - Viral load increased [Unknown]

NARRATIVE: CASE EVENT DATE: 20190411
